FAERS Safety Report 6994285-5 (Version None)
Quarter: 2010Q3

REPORT INFORMATION
  Report Type: 
  Country: None (occurrence: None)
  Receive Date: 20100917
  Receipt Date: 20100910
  Transmission Date: 20110219
  Serious: Yes (Hospitalization)
  Sender: FDA-Public Use
  Company Number: CO-ELI_LILLY_AND_COMPANY-CO201007007314

PATIENT
  Age: 80 Year
  Sex: Female

DRUGS (15)
  1. HUMALOG MIX 50/50 [Suspect]
     Indication: TYPE 2 DIABETES MELLITUS
     Dosage: 35 IU, EACH MORNING
     Route: 058
     Dates: start: 20100511
  2. HUMALOG MIX 50/50 [Suspect]
     Dosage: 15 IU, EACH EVENING
     Route: 058
     Dates: start: 20100511
  3. HUMALOG MIX 50/50 [Suspect]
     Dosage: 25 IU, EACH MORNING
  4. HUMALOG MIX 50/50 [Suspect]
     Dosage: 20 IU, EACH EVENING
  5. GLIBENCLAMIDE [Concomitant]
     Dosage: UNK, UNKNOWN
     Route: 066
  6. METFORMIN [Concomitant]
     Dosage: UNK, UNKNOWN
     Route: 065
  7. LOSARTAN POTASSIUM [Concomitant]
     Dosage: UNK, UNKNOWN
     Route: 065
  8. AMLODIPINE [Concomitant]
     Dosage: UNK, UNKNOWN
     Route: 065
  9. OMEPRAZOLE [Concomitant]
     Dosage: UNK, UNKNOWN
     Route: 065
  10. AMITRIPTYLINE HCL [Concomitant]
     Dosage: UNK, UNKNOWN
     Route: 065
  11. SPIRONOLACTONE [Concomitant]
     Dosage: 100 MG, UNKNOWN
     Route: 065
  12. LEVOTHYROXINE [Concomitant]
     Dosage: UNK, UNKNOWN
     Route: 065
  13. FISH OIL [Concomitant]
     Dosage: UNK, UNKNOWN
     Route: 065
  14. NIACIN [Concomitant]
     Dosage: UNK, UNKNOWN
     Route: 065
  15. NATRILIX [Concomitant]

REACTIONS (6)
  - DEHYDRATION [None]
  - HYPERKALAEMIA [None]
  - HYPOAESTHESIA [None]
  - INCORRECT DOSE ADMINISTERED [None]
  - PAIN IN EXTREMITY [None]
  - TREMOR [None]
